FAERS Safety Report 4780119-6 (Version None)
Quarter: 2005Q3

REPORT INFORMATION
  Report Type: 
  Country: None (occurrence: None)
  Receive Date: 20050914
  Receipt Date: 20050509
  Transmission Date: 20060218
  Serious: Yes (Death, Hospitalization)
  Sender: FDA-Public Use
  Company Number: 163-20785-05040378

PATIENT
  Age: 70 Year
  Sex: Female

DRUGS (23)
  1. THALOMID [Suspect]
     Indication: MULTIPLE MYELOMA
     Dosage: 200 MG, DAILY, ORAL;  100 MG, DAILY, ORAL
     Route: 048
     Dates: start: 20041023, end: 20041128
  2. THALOMID [Suspect]
     Indication: MULTIPLE MYELOMA
     Dosage: 200 MG, DAILY, ORAL;  100 MG, DAILY, ORAL
     Route: 048
     Dates: start: 20050101
  3. DEXAMETHASONE [Suspect]
     Indication: MULTIPLE MYELOMA
     Dosage: 20 MG, DAILY, ORAL
     Route: 048
     Dates: start: 20041216, end: 20041219
  4. MELPHALAN (MELPHALAN) [Suspect]
     Indication: MULTIPLE MYELOMA
     Dosage: 225 MG, INTRAVENOUS
     Route: 042
     Dates: start: 20041216, end: 20041216
  5. VELCADE [Suspect]
     Indication: MULTIPLE MYELOMA
     Dates: start: 20041023, end: 20041023
  6. VELCADE [Suspect]
     Indication: MULTIPLE MYELOMA
     Dates: start: 20041122, end: 20041122
  7. CISPLATIN [Suspect]
     Indication: MULTIPLE MYELOMA
     Dates: start: 20041023, end: 20041023
  8. CISPLATIN [Suspect]
     Indication: MULTIPLE MYELOMA
     Dates: start: 20041122, end: 20041122
  9. ADRIAMYCIN PFS [Suspect]
     Indication: MULTIPLE MYELOMA
     Dates: start: 20041023, end: 20041023
  10. ADRIAMYCIN PFS [Suspect]
     Indication: MULTIPLE MYELOMA
     Dates: start: 20041122, end: 20041122
  11. CYCLOPHOSPHAMIDE [Suspect]
     Indication: MULTIPLE MYELOMA
     Dates: start: 20041023, end: 20041023
  12. CYCLOPHOSPHAMIDE [Suspect]
     Indication: MULTIPLE MYELOMA
     Dates: start: 20041122, end: 20041122
  13. ETOPOSIDE [Suspect]
     Indication: MULTIPLE MYELOMA
     Dates: start: 20041023, end: 20041023
  14. ETOPOSIDE [Suspect]
     Indication: MULTIPLE MYELOMA
     Dates: start: 20041122, end: 20041122
  15. TEQUIN [Concomitant]
  16. AMBISOME [Concomitant]
  17. FLEXERIL [Concomitant]
  18. PROTONIX [Concomitant]
  19. METOPROLOL [Concomitant]
  20. ZOLOFT [Concomitant]
  21. DIGOXIN [Concomitant]
  22. ACYCLOVIR [Concomitant]
  23. HYDROCHLOROTHIAZIDE [Concomitant]

REACTIONS (16)
  - ATELECTASIS [None]
  - CONFUSIONAL STATE [None]
  - DEATH [None]
  - DISEASE PROGRESSION [None]
  - DYSPNOEA [None]
  - LETHARGY [None]
  - LUNG DISORDER [None]
  - MUCOSAL INFLAMMATION [None]
  - OESOPHAGITIS [None]
  - ORTHOSTATIC HYPOTENSION [None]
  - PLEURAL EFFUSION [None]
  - PNEUMONIA [None]
  - PYREXIA [None]
  - STAPHYLOCOCCAL INFECTION [None]
  - THROMBOCYTOPENIA [None]
  - URINARY INCONTINENCE [None]
